FAERS Safety Report 12898248 (Version 1)
Quarter: 2016Q4

REPORT INFORMATION
  Report Type: Spontaneous
  Country: US (occurrence: US)
  Receive Date: 20161031
  Receipt Date: 20161031
  Transmission Date: 20170207
  Serious: No
  Sender: FDA-Public Use
  Company Number: US-009507513-1610USA010985

PATIENT
  Age: 47 Year
  Sex: Female

DRUGS (5)
  1. XANAX [Concomitant]
     Active Substance: ALPRAZOLAM
  2. HYDROCODONE [Concomitant]
     Active Substance: HYDROCODONE
  3. ZEPATIER [Suspect]
     Active Substance: ELBASVIR\GRAZOPREVIR
     Indication: HEPATITIS C
     Dosage: 1 TABLET BY MOUTH EVERY DAY FOR 12 WEEKS
     Route: 048
     Dates: start: 20161005
  4. PREDNISONE. [Concomitant]
     Active Substance: PREDNISONE
  5. AMITIZA [Concomitant]
     Active Substance: LUBIPROSTONE

REACTIONS (3)
  - Headache [Unknown]
  - Drug dose omission [Unknown]
  - Fatigue [Unknown]

NARRATIVE: CASE EVENT DATE: 201610
